FAERS Safety Report 16813701 (Version 5)
Quarter: 2019Q4

REPORT INFORMATION
  Report Type: Spontaneous
  Country: US (occurrence: US)
  Receive Date: 20190917
  Receipt Date: 20191112
  Transmission Date: 20200122
  Serious: Yes (Other)
  Sender: FDA-Public Use
  Company Number: US-SHIRE-US201929831

PATIENT
  Age: 56 Year
  Sex: Female
  Weight: 51 kg

DRUGS (4)
  1. GATTEX [Suspect]
     Active Substance: TEDUGLUTIDE\WATER
     Indication: SHORT-BOWEL SYNDROME
     Dosage: 0.25 MILLILITER, 1X/DAY:QD
     Route: 065
     Dates: start: 201907, end: 201907
  2. GATTEX [Suspect]
     Active Substance: TEDUGLUTIDE\WATER
     Dosage: 0.255 INJ, UNK
     Route: 058
     Dates: start: 20190907, end: 201910
  3. GATTEX [Suspect]
     Active Substance: TEDUGLUTIDE\WATER
     Dosage: 0.25 MILLIGRAM, 1X/DAY:QD
     Route: 065
     Dates: start: 201908
  4. GATTEX [Suspect]
     Active Substance: TEDUGLUTIDE\WATER
     Dosage: 2.55 MILLIGRAM, 1X/DAY:QD
     Route: 058
     Dates: start: 20190910, end: 201909

REACTIONS (6)
  - Adverse drug reaction [Unknown]
  - Stoma complication [Not Recovered/Not Resolved]
  - Hernia [Unknown]
  - Abdominal distension [Not Recovered/Not Resolved]
  - Nausea [Unknown]
  - Gait inability [Unknown]

NARRATIVE: CASE EVENT DATE: 20191015
